FAERS Safety Report 25014054 (Version 1)
Quarter: 2025Q1

REPORT INFORMATION
  Report Type: Spontaneous
  Country: ES (occurrence: ES)
  Receive Date: 20250226
  Receipt Date: 20250226
  Transmission Date: 20250409
  Serious: Yes (Hospitalization)
  Sender: MYLAN
  Company Number: None

PATIENT
  Age: 36 Year
  Sex: Female

DRUGS (3)
  1. TRAMADOL [Interacting]
     Active Substance: TRAMADOL
     Indication: Pain
     Dosage: 100 MILLIGRAM, QD
     Dates: start: 20250115, end: 20250116
  2. LEVOMEPROMAZINE [Interacting]
     Active Substance: LEVOMEPROMAZINE
     Indication: Hypothyroidism
     Dosage: 75 MILLIGRAM, QD
     Dates: start: 20250115, end: 20250116
  3. METOCLOPRAMIDE HYDROCHLORIDE [Interacting]
     Active Substance: METOCLOPRAMIDE HYDROCHLORIDE
     Indication: Vomiting
     Dosage: 10 MILLIGRAM, QD
     Dates: start: 20250116, end: 20250116

REACTIONS (3)
  - Somnolence [Recovered/Resolved]
  - Product name confusion [Recovered/Resolved]
  - Drug interaction [Unknown]

NARRATIVE: CASE EVENT DATE: 20250116
